FAERS Safety Report 11320484 (Version 1)
Quarter: 2015Q3

REPORT INFORMATION
  Report Type: Spontaneous
  Country: US (occurrence: None)
  Receive Date: 20150728
  Receipt Date: 20150728
  Transmission Date: 20151125
  Serious: Yes (Other)
  Sender: FDA-Public Use
  Company Number: None

PATIENT
  Age: 66 Year
  Sex: Male
  Weight: 90.72 kg

DRUGS (7)
  1. PROTONIX [Concomitant]
     Active Substance: PANTOPRAZOLE SODIUM
  2. VITAMIN C [Concomitant]
     Active Substance: ASCORBIC ACID
  3. CELEBREX [Concomitant]
     Active Substance: CELECOXIB
  4. VIT. B12 [Concomitant]
  5. DIPRIVAN [Suspect]
     Active Substance: PROPOFOL
     Indication: SEDATION
     Dosage: USED DURING COLONSCOPY. POSSIBLE PROPOFOL REACTION.
     Dates: start: 20150723, end: 20150723
  6. CRESTOR [Concomitant]
     Active Substance: ROSUVASTATIN CALCIUM
  7. ASA [Concomitant]
     Active Substance: ASPIRIN

REACTIONS (3)
  - Pyrexia [None]
  - Tremor [None]
  - Chills [None]

NARRATIVE: CASE EVENT DATE: 20150723
